FAERS Safety Report 23976434 (Version 2)
Quarter: 2025Q1

REPORT INFORMATION
  Report Type: Spontaneous
  Country: US (occurrence: US)
  Receive Date: 20240614
  Receipt Date: 20250130
  Transmission Date: 20250408
  Serious: Yes (Hospitalization)
  Sender: ACCORD
  Company Number: US-Accord-429146

PATIENT
  Age: 15 Year
  Sex: Female

DRUGS (1)
  1. MONTELUKAST [Suspect]
     Active Substance: MONTELUKAST
     Indication: Asthma

REACTIONS (2)
  - Substance-induced psychotic disorder [Recovered/Resolved]
  - Depressive symptom [Recovered/Resolved]
